FAERS Safety Report 7582353-9 (Version None)
Quarter: 2011Q2

REPORT INFORMATION
  Report Type: 
  Country: None (occurrence: None)
  Receive Date: 20110630
  Receipt Date: 20110620
  Transmission Date: 20111010
  Serious: Yes (Other)
  Sender: FDA-Public Use
  Company Number: JP-JNJFOC-20110611824

PATIENT
  Age: 79 Year
  Sex: Female
  Weight: 36 kg

DRUGS (2)
  1. INVEGA [Suspect]
     Indication: SENILE PSYCHOSIS
     Route: 048
     Dates: start: 20110217, end: 20110401
  2. AMOBAN [Concomitant]
     Indication: PRODUCT USED FOR UNKNOWN INDICATION
     Route: 048

REACTIONS (5)
  - ALANINE AMINOTRANSFERASE INCREASED [None]
  - BLOOD CREATINE PHOSPHOKINASE INCREASED [None]
  - DYSPHAGIA [None]
  - DYSKINESIA [None]
  - ASPARTATE AMINOTRANSFERASE INCREASED [None]
